FAERS Safety Report 22050745 (Version 2)
Quarter: 2023Q1

REPORT INFORMATION
  Report Type: Spontaneous
  Country: CA (occurrence: CA)
  Receive Date: 20230301
  Receipt Date: 20230307
  Transmission Date: 20230418
  Serious: Yes (Life-Threatening, Hospitalization, Disabling, Other)
  Sender: FDA-Public Use
  Company Number: CA-BRISTOL-MYERS SQUIBB COMPANY-2023-028861

PATIENT
  Age: 44 Year
  Sex: Female

DRUGS (297)
  1. ORENCIA [Suspect]
     Active Substance: ABATACEPT
     Indication: Rheumatoid arthritis
     Route: 042
  2. ORENCIA [Suspect]
     Active Substance: ABATACEPT
     Indication: Psoriatic arthropathy
     Route: 041
  3. ORENCIA [Suspect]
     Active Substance: ABATACEPT
     Route: 042
  4. ORENCIA [Suspect]
     Active Substance: ABATACEPT
     Route: 042
  5. ORENCIA [Suspect]
     Active Substance: ABATACEPT
  6. ORENCIA [Suspect]
     Active Substance: ABATACEPT
     Indication: Rheumatoid arthritis
     Route: 058
  7. ORENCIA [Suspect]
     Active Substance: ABATACEPT
  8. ORENCIA [Suspect]
     Active Substance: ABATACEPT
     Route: 058
  9. ORENCIA [Suspect]
     Active Substance: ABATACEPT
     Route: 058
  10. ORENCIA [Suspect]
     Active Substance: ABATACEPT
     Route: 058
  11. ACETAMINOPHEN [Concomitant]
     Active Substance: ACETAMINOPHEN
     Indication: Rheumatoid arthritis
  12. ACTEMRA [Concomitant]
     Active Substance: TOCILIZUMAB
     Indication: Rheumatoid arthritis
     Route: 058
  13. ACTEMRA [Concomitant]
     Active Substance: TOCILIZUMAB
     Route: 042
  14. ACTEMRA [Concomitant]
     Active Substance: TOCILIZUMAB
     Route: 042
  15. ACTEMRA [Concomitant]
     Active Substance: TOCILIZUMAB
     Route: 042
  16. ACTEMRA [Concomitant]
     Active Substance: TOCILIZUMAB
     Route: 042
  17. ACTEMRA [Concomitant]
     Active Substance: TOCILIZUMAB
     Route: 042
  18. ACTEMRA [Concomitant]
     Active Substance: TOCILIZUMAB
     Route: 042
  19. ACTEMRA [Concomitant]
     Active Substance: TOCILIZUMAB
     Route: 042
  20. ADALIMUMAB [Concomitant]
     Active Substance: ADALIMUMAB
     Indication: Psoriatic arthropathy
     Route: 048
  21. ADALIMUMAB [Concomitant]
     Active Substance: ADALIMUMAB
     Route: 058
  22. ADALIMUMAB [Concomitant]
     Active Substance: ADALIMUMAB
     Route: 058
  23. ALENDRONIC ACID [Concomitant]
     Active Substance: ALENDRONIC ACID
     Indication: Rheumatoid arthritis
  24. ALENDRONIC ACID [Concomitant]
     Active Substance: ALENDRONIC ACID
     Route: 048
  25. ALENDRONIC ACID [Concomitant]
     Active Substance: ALENDRONIC ACID
     Route: 048
  26. ALENDRONIC ACID [Concomitant]
     Active Substance: ALENDRONIC ACID
  27. PREDNISONE [Concomitant]
     Active Substance: PREDNISONE
     Indication: Rheumatoid arthritis
     Route: 048
  28. PREDNISONE [Concomitant]
     Active Substance: PREDNISONE
  29. PREDNISONE [Concomitant]
     Active Substance: PREDNISONE
  30. APREMILAST [Concomitant]
     Active Substance: APREMILAST
     Indication: Product used for unknown indication
  31. APREPITANT [Concomitant]
     Active Substance: APREPITANT
     Indication: Product used for unknown indication
     Route: 042
  32. ARAVA [Concomitant]
     Active Substance: LEFLUNOMIDE
     Indication: Rheumatoid arthritis
  33. ARAVA [Concomitant]
     Active Substance: LEFLUNOMIDE
     Dosage: 1 EVERY 1 DAYS
     Route: 048
  34. ARAVA [Concomitant]
     Active Substance: LEFLUNOMIDE
     Route: 048
  35. ARAVA [Concomitant]
     Active Substance: LEFLUNOMIDE
     Route: 048
  36. CALCIUM CARBONATE [Concomitant]
     Active Substance: CALCIUM CARBONATE
     Indication: Product used for unknown indication
  37. CELEBREX [Concomitant]
     Active Substance: CELECOXIB
     Indication: Product used for unknown indication
     Dosage: 1 EVERY 1 DAYS
     Route: 048
  38. CELECOXIB [Concomitant]
     Active Substance: CELECOXIB
     Indication: Product used for unknown indication
     Dosage: 1 EVERY 1 DAYS
  39. CELECOXIB [Concomitant]
     Active Substance: CELECOXIB
  40. CERTOLIZUMAB PEGOL [Concomitant]
     Active Substance: CERTOLIZUMAB PEGOL
     Indication: Product used for unknown indication
  41. CETIRIZINE [Concomitant]
     Active Substance: CETIRIZINE HYDROCHLORIDE
     Indication: Rheumatoid arthritis
     Dosage: 1 EVERY 1 DAYS
     Route: 048
  42. CETIRIZINE [Concomitant]
     Active Substance: CETIRIZINE HYDROCHLORIDE
     Route: 048
  43. CETIRIZINE [Concomitant]
     Active Substance: CETIRIZINE HYDROCHLORIDE
  44. CETIRIZINE HYDROCHLORIDE [Concomitant]
     Active Substance: CETIRIZINE HYDROCHLORIDE
     Indication: Rheumatoid arthritis
  45. CETIRIZINE HYDROCHLORIDE [Concomitant]
     Active Substance: CETIRIZINE HYDROCHLORIDE
     Route: 048
  46. CETIRIZINE HYDROCHLORIDE [Concomitant]
     Active Substance: CETIRIZINE HYDROCHLORIDE
     Dosage: 1 EVERY 1 DAYS
     Route: 048
  47. CETIRIZINE HYDROCHLORIDE [Concomitant]
     Active Substance: CETIRIZINE HYDROCHLORIDE
  48. CETIRIZINE HYDROCHLORIDE [Concomitant]
     Active Substance: CETIRIZINE HYDROCHLORIDE
     Dosage: 1 EVERY 1 DAYS
     Route: 048
  49. CETIRIZINE HYDROCHLORIDE [Concomitant]
     Active Substance: CETIRIZINE HYDROCHLORIDE
     Dosage: 1 EVERY 1 DAYS
     Route: 048
  50. CETIRIZINE HYDROCHLORIDE [Concomitant]
     Active Substance: CETIRIZINE HYDROCHLORIDE
     Dosage: 1 EVERY 1 DAYS
     Route: 048
  51. CETIRIZINE HYDROCHLORIDE [Concomitant]
     Active Substance: CETIRIZINE HYDROCHLORIDE
     Route: 048
  52. CHLORAPREP [Concomitant]
     Active Substance: CHLORHEXIDINE GLUCONATE\ISOPROPYL ALCOHOL
     Indication: Product used for unknown indication
  53. CHLORAPREP [Concomitant]
     Active Substance: CHLORHEXIDINE GLUCONATE\ISOPROPYL ALCOHOL
     Route: 061
  54. CHLORHEXIDINE [Concomitant]
     Active Substance: CHLORHEXIDINE
     Indication: Product used for unknown indication
     Route: 048
  55. CHLORHEXIDINE [Concomitant]
     Active Substance: CHLORHEXIDINE
     Route: 002
  56. CHLORHEXIDINE [Concomitant]
     Active Substance: CHLORHEXIDINE
     Route: 061
  57. CHLORHEXIDINE GLUCONATE [Concomitant]
     Active Substance: CHLORHEXIDINE GLUCONATE
     Indication: Product used for unknown indication
     Route: 061
  58. CHLORHEXIDINE GLUCONATE [Concomitant]
     Active Substance: CHLORHEXIDINE GLUCONATE
     Route: 048
  59. CHLORHEXIDINE GLUCONATE [Concomitant]
     Active Substance: CHLORHEXIDINE GLUCONATE
     Route: 002
  60. CIMZIA [Concomitant]
     Active Substance: CERTOLIZUMAB PEGOL
     Indication: Rheumatoid arthritis
     Route: 058
  61. CIMZIA [Concomitant]
     Active Substance: CERTOLIZUMAB PEGOL
     Route: 058
  62. CIMZIA [Concomitant]
     Active Substance: CERTOLIZUMAB PEGOL
     Route: 058
  63. CIMZIA [Concomitant]
     Active Substance: CERTOLIZUMAB PEGOL
     Dosage: 1 EVERY 1 DAYS
     Route: 058
  64. CIMZIA [Concomitant]
     Active Substance: CERTOLIZUMAB PEGOL
     Route: 058
  65. CIMZIA [Concomitant]
     Active Substance: CERTOLIZUMAB PEGOL
  66. CIMZIA [Concomitant]
     Active Substance: CERTOLIZUMAB PEGOL
  67. CIMZIA [Concomitant]
     Active Substance: CERTOLIZUMAB PEGOL
     Route: 058
  68. CIMZIA [Concomitant]
     Active Substance: CERTOLIZUMAB PEGOL
  69. CIMZIA [Concomitant]
     Active Substance: CERTOLIZUMAB PEGOL
  70. CORTISONE [Concomitant]
     Active Substance: CORTISONE
     Indication: Rheumatoid arthritis
     Route: 058
  71. CORTISONE [Concomitant]
     Active Substance: CORTISONE
     Route: 048
  72. CORTISONE [Concomitant]
     Active Substance: CORTISONE
     Route: 058
  73. CORTISONE [Concomitant]
     Active Substance: CORTISONE
     Route: 048
  74. CORTISONE [Concomitant]
     Active Substance: CORTISONE
     Route: 003
  75. CORTISONE [Concomitant]
     Active Substance: CORTISONE
     Route: 003
  76. CORTISONE [Concomitant]
     Active Substance: CORTISONE
     Route: 061
  77. CORTISONE [Concomitant]
     Active Substance: CORTISONE
     Route: 061
  78. CORTISONE [Concomitant]
     Active Substance: CORTISONE
     Route: 058
  79. CORTISONE [Concomitant]
     Active Substance: CORTISONE
  80. CORTISONE [Concomitant]
     Active Substance: CORTISONE
  81. CORTISONE [Concomitant]
     Active Substance: CORTISONE
  82. CORTISONE ACETATE [Concomitant]
     Active Substance: CORTISONE ACETATE
     Indication: Rheumatoid arthritis
     Route: 061
  83. CORTISONE ACETATE [Concomitant]
     Active Substance: CORTISONE ACETATE
     Route: 048
  84. CORTISONE ACETATE [Concomitant]
     Active Substance: CORTISONE ACETATE
  85. CORTISONE ACETATE [Concomitant]
     Active Substance: CORTISONE ACETATE
     Route: 048
  86. CORTISONE ACETATE [Concomitant]
     Active Substance: CORTISONE ACETATE
  87. COSENTYX [Concomitant]
     Active Substance: SECUKINUMAB
     Indication: Rheumatoid arthritis
     Route: 005
  88. COSENTYX [Concomitant]
     Active Substance: SECUKINUMAB
     Indication: Psoriatic arthropathy
  89. DESOXIMETASONE [Concomitant]
     Active Substance: DESOXIMETASONE
     Indication: Rheumatoid arthritis
     Route: 003
  90. DESOXIMETASONE [Concomitant]
     Active Substance: DESOXIMETASONE
     Dosage: 1 EVERY 1 WEEKS
     Route: 048
  91. DESOXIMETASONE [Concomitant]
     Active Substance: DESOXIMETASONE
     Route: 061
  92. DESOXIMETASONE [Concomitant]
     Active Substance: DESOXIMETASONE
     Route: 048
  93. DESOXIMETASONE [Concomitant]
     Active Substance: DESOXIMETASONE
  94. DESOXIMETASONE [Concomitant]
     Active Substance: DESOXIMETASONE
  95. DESOXIMETASONE [Concomitant]
     Active Substance: DESOXIMETASONE
     Route: 048
  96. DESOXIMETASONE [Concomitant]
     Active Substance: DESOXIMETASONE
     Route: 058
  97. DESOXIMETASONE [Concomitant]
     Active Substance: DESOXIMETASONE
     Route: 042
  98. DESOXIMETASONE [Concomitant]
     Active Substance: DESOXIMETASONE
     Route: 058
  99. DESOXIMETASONE [Concomitant]
     Active Substance: DESOXIMETASONE
     Route: 003
  100. DESOXIMETASONE [Concomitant]
     Active Substance: DESOXIMETASONE
  101. DESOXIMETASONE [Concomitant]
     Active Substance: DESOXIMETASONE
     Route: 003
  102. DESOXIMETASONE [Concomitant]
     Active Substance: DESOXIMETASONE
     Route: 048
  103. DESOXIMETASONE [Concomitant]
     Active Substance: DESOXIMETASONE
     Route: 048
  104. DESOXIMETASONE [Concomitant]
     Active Substance: DESOXIMETASONE
     Route: 048
  105. DESOXIMETASONE [Concomitant]
     Active Substance: DESOXIMETASONE
  106. DESOXIMETASONE [Concomitant]
     Active Substance: DESOXIMETASONE
     Route: 003
  107. DICLOFENAC DIETHYLAMINE [Concomitant]
     Active Substance: DICLOFENAC DIETHYLAMINE
     Indication: Product used for unknown indication
  108. DICLOFENAC SODIUM [Concomitant]
     Active Substance: DICLOFENAC SODIUM
     Indication: Product used for unknown indication
  109. DICLOFENAC SODIUM [Concomitant]
     Active Substance: DICLOFENAC SODIUM
     Route: 058
  110. DICLOFENAC SODIUM [Concomitant]
     Active Substance: DICLOFENAC SODIUM
  111. DICLOFENAC SODIUM [Concomitant]
     Active Substance: DICLOFENAC SODIUM
     Route: 047
  112. DICLOFENAC SODIUM [Concomitant]
     Active Substance: DICLOFENAC SODIUM
     Route: 048
  113. DICLOFENAC SODIUM [Concomitant]
     Active Substance: DICLOFENAC SODIUM
  114. DICLOFENAC SODIUM [Concomitant]
     Active Substance: DICLOFENAC SODIUM
  115. DICLOFENAC POTASSIUM [Concomitant]
     Active Substance: DICLOFENAC POTASSIUM
     Indication: Product used for unknown indication
  116. DICLOFENAC POTASSIUM [Concomitant]
     Active Substance: DICLOFENAC POTASSIUM
  117. DICLOFENAC POTASSIUM [Concomitant]
     Active Substance: DICLOFENAC POTASSIUM
     Route: 048
  118. DICLOFENAC POTASSIUM [Concomitant]
     Active Substance: DICLOFENAC POTASSIUM
     Dosage: 1 EVERY 1 DAYS
  119. DICLOFENAC POTASSIUM [Concomitant]
     Active Substance: DICLOFENAC POTASSIUM
  120. DICLOFENAC POTASSIUM [Concomitant]
     Active Substance: DICLOFENAC POTASSIUM
     Route: 058
  121. DOXYCYCLINE [Concomitant]
     Active Substance: DOXYCYCLINE
     Indication: Product used for unknown indication
  122. ENBREL [Concomitant]
     Active Substance: ETANERCEPT
     Indication: Rheumatoid arthritis
     Dosage: 1 EVERY 1WEEKS
     Route: 058
  123. ENBREL [Concomitant]
     Active Substance: ETANERCEPT
     Indication: Psoriatic arthropathy
     Dosage: 1 EVERY 1WEEKS
     Route: 058
  124. ENBREL [Concomitant]
     Active Substance: ETANERCEPT
     Dosage: 1 EVERY 1WEEKS
     Route: 058
  125. ENBREL [Concomitant]
     Active Substance: ETANERCEPT
  126. ENBREL [Concomitant]
     Active Substance: ETANERCEPT
     Route: 058
  127. ERELZI [Concomitant]
     Active Substance: ETANERCEPT-SZZS
     Indication: Rheumatoid arthritis
     Dosage: 1 EVERY 1WEEKS
     Route: 058
  128. ERELZI [Concomitant]
     Active Substance: ETANERCEPT-SZZS
     Route: 058
  129. ERELZI [Concomitant]
     Active Substance: ETANERCEPT-SZZS
  130. FLUMETHASONE PIVALATE [Concomitant]
     Active Substance: FLUMETHASONE PIVALATE
     Indication: Rheumatoid arthritis
     Route: 058
  131. FOLIC ACID [Concomitant]
     Active Substance: FOLIC ACID
     Indication: Rheumatoid arthritis
     Route: 058
  132. FOLIC ACID [Concomitant]
     Active Substance: FOLIC ACID
     Route: 048
  133. FOLIC ACID [Concomitant]
     Active Substance: FOLIC ACID
     Route: 048
  134. FOLIC ACID [Concomitant]
     Active Substance: FOLIC ACID
  135. FOLIC ACID [Concomitant]
     Active Substance: FOLIC ACID
     Route: 048
  136. FOLIC ACID [Concomitant]
     Active Substance: FOLIC ACID
  137. FOLIC ACID [Concomitant]
     Active Substance: FOLIC ACID
  138. FOLIC ACID [Concomitant]
     Active Substance: FOLIC ACID
     Route: 048
  139. FOLIC ACID [Concomitant]
     Active Substance: FOLIC ACID
     Route: 048
  140. FOSAMAX [Concomitant]
     Active Substance: ALENDRONATE SODIUM
     Indication: Rheumatoid arthritis
     Route: 048
  141. FOSAMAX [Concomitant]
     Active Substance: ALENDRONATE SODIUM
  142. GOLIMUMAB [Concomitant]
     Active Substance: GOLIMUMAB
     Indication: Rheumatoid arthritis
  143. HUMIRA [Concomitant]
     Active Substance: ADALIMUMAB
     Indication: Rheumatoid arthritis
     Route: 058
  144. HUMIRA [Concomitant]
     Active Substance: ADALIMUMAB
     Indication: Psoriatic arthropathy
     Route: 058
  145. HUMIRA [Concomitant]
     Active Substance: ADALIMUMAB
     Route: 058
  146. HUMIRA [Concomitant]
     Active Substance: ADALIMUMAB
  147. HYDROCORTISONE [Concomitant]
     Active Substance: HYDROCORTISONE
     Indication: Rheumatoid arthritis
     Route: 003
  148. HYDROCORTISONE [Concomitant]
     Active Substance: HYDROCORTISONE
     Route: 048
  149. HYDROCORTISONE [Concomitant]
     Active Substance: HYDROCORTISONE
     Route: 058
  150. HYDROCORTISONE [Concomitant]
     Active Substance: HYDROCORTISONE
     Route: 061
  151. HYDROCORTISONE [Concomitant]
     Active Substance: HYDROCORTISONE
  152. HYDROCORTISONE [Concomitant]
     Active Substance: HYDROCORTISONE
  153. HYDROCORTISONE BUTYRATE [Concomitant]
     Active Substance: HYDROCORTISONE BUTYRATE
     Indication: Rheumatoid arthritis
     Route: 058
  154. HYDROCORTISONE BUTYRATE [Concomitant]
     Active Substance: HYDROCORTISONE BUTYRATE
  155. HYDROCORTISONE SODIUM SUCCINATE [Concomitant]
     Active Substance: HYDROCORTISONE SODIUM SUCCINATE
     Indication: Rheumatoid arthritis
     Route: 048
  156. HYDROCORTISONE SODIUM SUCCINATE [Concomitant]
     Active Substance: HYDROCORTISONE SODIUM SUCCINATE
  157. HYDROCORTISONE SODIUM SUCCINATE [Concomitant]
     Active Substance: HYDROCORTISONE SODIUM SUCCINATE
  158. HYDROCORTISONE SODIUM SUCCINATE [Concomitant]
     Active Substance: HYDROCORTISONE SODIUM SUCCINATE
     Route: 048
  159. HYDROXYCHLOROQUINE [Concomitant]
     Active Substance: HYDROXYCHLOROQUINE
     Indication: Rheumatoid arthritis
     Route: 048
  160. HYDROXYCHLOROQUINE [Concomitant]
     Active Substance: HYDROXYCHLOROQUINE
  161. HYDROXYCHLOROQUINE [Concomitant]
     Active Substance: HYDROXYCHLOROQUINE
     Route: 048
  162. HYDROXYCHLOROQUINE [Concomitant]
     Active Substance: HYDROXYCHLOROQUINE
  163. HYDROXYCHLOROQUINE [Concomitant]
     Active Substance: HYDROXYCHLOROQUINE
  164. HYDROXYCHLOROQUINE [Concomitant]
     Active Substance: HYDROXYCHLOROQUINE
  165. HYDROXYCHLOROQUINE [Concomitant]
     Active Substance: HYDROXYCHLOROQUINE
     Route: 048
  166. HYDROXYCHLOROQUINE SULFATE [Concomitant]
     Active Substance: HYDROXYCHLOROQUINE SULFATE
     Indication: Systemic lupus erythematosus
     Dosage: 1 EVERY 1 DAYS
     Route: 058
  167. HYDROXYCHLOROQUINE SULFATE [Concomitant]
     Active Substance: HYDROXYCHLOROQUINE SULFATE
     Indication: Rheumatoid arthritis
     Dosage: 1 EVERY 1 DAYS
  168. HYDROXYCHLOROQUINE SULFATE [Concomitant]
     Active Substance: HYDROXYCHLOROQUINE SULFATE
     Route: 048
  169. HYDROXYCHLOROQUINE SULFATE [Concomitant]
     Active Substance: HYDROXYCHLOROQUINE SULFATE
     Dosage: 1 EVERY 1 DAYS
  170. HYDROXYCHLOROQUINE SULFATE [Concomitant]
     Active Substance: HYDROXYCHLOROQUINE SULFATE
     Route: 048
  171. HYDROXYCHLOROQUINE SULFATE [Concomitant]
     Active Substance: HYDROXYCHLOROQUINE SULFATE
  172. HYDROXYCHLOROQUINE SULFATE [Concomitant]
     Active Substance: HYDROXYCHLOROQUINE SULFATE
     Dosage: 1 EVERY 1 DAYS
  173. HYDROXYCHLOROQUINE SULFATE [Concomitant]
     Active Substance: HYDROXYCHLOROQUINE SULFATE
     Dosage: 1 EVERY 1 DAYS
     Route: 048
  174. HYDROXYCHLOROQUINE SULFATE [Concomitant]
     Active Substance: HYDROXYCHLOROQUINE SULFATE
     Dosage: 1 EVERY 1 DAYS
  175. INFLIXIMAB [Concomitant]
     Active Substance: INFLIXIMAB
     Indication: Rheumatoid arthritis
     Route: 042
  176. INFLIXIMAB [Concomitant]
     Active Substance: INFLIXIMAB
  177. INFLIXIMAB [Concomitant]
     Active Substance: INFLIXIMAB
     Route: 042
  178. ISOPROPYL ALCOHOL [Concomitant]
     Active Substance: ISOPROPYL ALCOHOL
     Indication: Product used for unknown indication
     Dosage: LIQUID
     Route: 061
  179. LEFLUNOMIDE [Concomitant]
     Active Substance: LEFLUNOMIDE
     Indication: Rheumatoid arthritis
     Route: 048
  180. LEFLUNOMIDE [Concomitant]
     Active Substance: LEFLUNOMIDE
     Route: 048
  181. LEFLUNOMIDE [Concomitant]
     Active Substance: LEFLUNOMIDE
  182. LYRICA [Concomitant]
     Active Substance: PREGABALIN
     Indication: Product used for unknown indication
  183. METHOTREXATE [Concomitant]
     Active Substance: METHOTREXATE
     Indication: Rheumatoid arthritis
     Dosage: 1 EVERY 1WEEKS
     Route: 013
  184. METHOTREXATE [Concomitant]
     Active Substance: METHOTREXATE
     Dosage: 1 EVERY 1WEEKS
     Route: 058
  185. METHOTREXATE [Concomitant]
     Active Substance: METHOTREXATE
     Dosage: 1 EVERY 1 DAYS
     Route: 048
  186. METHOTREXATE [Concomitant]
     Active Substance: METHOTREXATE
     Dosage: 1 EVERY 1 DAYS
     Route: 048
  187. METHOTREXATE [Concomitant]
     Active Substance: METHOTREXATE
     Dosage: 1 EVERY 1WEEKS
     Route: 058
  188. METHOTREXATE [Concomitant]
     Active Substance: METHOTREXATE
     Dosage: 1 EVERY 1WEEKS
     Route: 048
  189. METHOTREXATE [Concomitant]
     Active Substance: METHOTREXATE
     Dosage: 1 EVERY 1 DAYS
     Route: 048
  190. METHOTREXATE [Concomitant]
     Active Substance: METHOTREXATE
  191. METHOTREXATE [Concomitant]
     Active Substance: METHOTREXATE
     Dosage: 1 EVERY 1 DAYS
     Route: 048
  192. METHOTREXATE [Concomitant]
     Active Substance: METHOTREXATE
     Dosage: 1 EVERY 1 DAYS
     Route: 048
  193. METHOTREXATE [Concomitant]
     Active Substance: METHOTREXATE
     Route: 048
  194. METHOTREXATE [Concomitant]
     Active Substance: METHOTREXATE
     Dosage: 2 EVERY 1 DAYS
  195. METHOTREXATE [Concomitant]
     Active Substance: METHOTREXATE
     Route: 048
  196. METHOTREXATE [Concomitant]
     Active Substance: METHOTREXATE
     Dosage: 1 EVERY 1 DAYS
     Route: 013
  197. METHOTREXATE [Concomitant]
     Active Substance: METHOTREXATE
     Route: 013
  198. METHOTREXATE [Concomitant]
     Active Substance: METHOTREXATE
     Route: 048
  199. METHOTREXATE [Concomitant]
     Active Substance: METHOTREXATE
     Dosage: 1 EVERY 1WEEKS
  200. MYCOPHENOLATE MOFETIL [Concomitant]
     Active Substance: MYCOPHENOLATE MOFETIL
     Indication: Product used for unknown indication
  201. NAPROXEN SODIUM [Concomitant]
     Active Substance: NAPROXEN SODIUM
     Indication: Rheumatoid arthritis
     Dosage: 2 EVERY 1 DAYS
  202. NAPROXEN SODIUM [Concomitant]
     Active Substance: NAPROXEN SODIUM
     Dosage: 2 EVERY 1 DAYS
  203. NAPROXEN SODIUM [Concomitant]
     Active Substance: NAPROXEN SODIUM
     Dosage: 2 EVERY 1 DAYS
  204. NEOMYCIN [Concomitant]
     Active Substance: NEOMYCIN
     Indication: Product used for unknown indication
  205. OTEZLA [Concomitant]
     Active Substance: APREMILAST
     Indication: Product used for unknown indication
     Dosage: 2 EVERY 1 DAYS
     Route: 048
  206. OXYCODONE [Concomitant]
     Active Substance: OXYCODONE
     Indication: Product used for unknown indication
  207. OXYCODONE HYDROCHLORIDE [Concomitant]
     Active Substance: OXYCODONE HYDROCHLORIDE
     Indication: Product used for unknown indication
  208. OXYCODONE TEREPHTHALATE [Concomitant]
     Active Substance: OXYCODONE TEREPHTHALATE
     Indication: Product used for unknown indication
  209. PERIOGARD [Concomitant]
     Active Substance: CHLORHEXIDINE GLUCONATE
     Indication: Product used for unknown indication
     Route: 002
  210. PERIOGARD [Concomitant]
     Active Substance: CHLORHEXIDINE GLUCONATE
  211. PHTHALYLSULFATHIAZOLE [Concomitant]
     Active Substance: PHTHALYLSULFATHIAZOLE
     Indication: Rheumatoid arthritis
     Route: 016
  212. PHTHALYLSULFATHIAZOLE [Concomitant]
     Active Substance: PHTHALYLSULFATHIAZOLE
  213. PHTHALYLSULFATHIAZOLE [Concomitant]
     Active Substance: PHTHALYLSULFATHIAZOLE
     Route: 048
  214. PHTHALYLSULFATHIAZOLE [Concomitant]
     Active Substance: PHTHALYLSULFATHIAZOLE
     Dosage: 2 EVERY 1 DAYS
     Route: 048
  215. PHTHALYLSULFATHIAZOLE [Concomitant]
     Active Substance: PHTHALYLSULFATHIAZOLE
     Route: 042
  216. PHTHALYLSULFATHIAZOLE [Concomitant]
     Active Substance: PHTHALYLSULFATHIAZOLE
     Route: 048
  217. PREDNISONE [Concomitant]
     Active Substance: PREDNISONE
     Indication: Rheumatoid arthritis
     Route: 042
  218. PREDNISONE [Concomitant]
     Active Substance: PREDNISONE
     Indication: Psoriatic arthropathy
     Route: 048
  219. PREDNISONE [Concomitant]
     Active Substance: PREDNISONE
  220. PREDNISONE [Concomitant]
     Active Substance: PREDNISONE
  221. PREDNISONE [Concomitant]
     Active Substance: PREDNISONE
     Route: 048
  222. PREDNISONE [Concomitant]
     Active Substance: PREDNISONE
     Route: 048
  223. PREDNISONE [Concomitant]
     Active Substance: PREDNISONE
     Route: 048
  224. PREDNISONE [Concomitant]
     Active Substance: PREDNISONE
  225. PREGABALIN [Concomitant]
     Active Substance: PREGABALIN
     Indication: Product used for unknown indication
  226. PSEUDOEPHEDRINE [Concomitant]
     Active Substance: PSEUDOEPHEDRINE
     Indication: Product used for unknown indication
  227. PSEUDOEPHEDRINE HYDROCHLORIDE [Concomitant]
     Active Substance: PSEUDOEPHEDRINE HYDROCHLORIDE
     Indication: Rheumatoid arthritis
  228. PSEUDOEPHEDRINE HYDROCHLORIDE [Concomitant]
     Active Substance: PSEUDOEPHEDRINE HYDROCHLORIDE
  229. PSEUDOEPHEDRINE HYDROCHLORIDE [Concomitant]
     Active Substance: PSEUDOEPHEDRINE HYDROCHLORIDE
  230. CETIRIZINE HYDROCHLORIDE\PSEUDOEPHEDRINE HYDROCHLORIDE [Concomitant]
     Active Substance: CETIRIZINE HYDROCHLORIDE\PSEUDOEPHEDRINE HYDROCHLORIDE
     Indication: Rheumatoid arthritis
     Route: 048
  231. CETIRIZINE HYDROCHLORIDE\PSEUDOEPHEDRINE HYDROCHLORIDE [Concomitant]
     Active Substance: CETIRIZINE HYDROCHLORIDE\PSEUDOEPHEDRINE HYDROCHLORIDE
  232. CETIRIZINE HYDROCHLORIDE\PSEUDOEPHEDRINE HYDROCHLORIDE [Concomitant]
     Active Substance: CETIRIZINE HYDROCHLORIDE\PSEUDOEPHEDRINE HYDROCHLORIDE
     Dosage: TABLET EXTENDED RELEASE
  233. REMICADE [Concomitant]
     Active Substance: INFLIXIMAB
     Indication: Rheumatoid arthritis
     Route: 042
  234. REMICADE [Concomitant]
     Active Substance: INFLIXIMAB
  235. REMICADE [Concomitant]
     Active Substance: INFLIXIMAB
     Dosage: POWDER SOLUTION  FOR INTRAVEOUS
     Route: 042
  236. RITUXIMAB [Concomitant]
     Active Substance: RITUXIMAB
     Indication: Rheumatoid arthritis
     Route: 058
  237. RITUXIMAB [Concomitant]
     Active Substance: RITUXIMAB
     Route: 042
  238. RITUXIMAB [Concomitant]
     Active Substance: RITUXIMAB
     Route: 041
  239. SULFASALAZINE [Concomitant]
     Active Substance: SULFASALAZINE
     Indication: Rheumatoid arthritis
     Route: 048
  240. SULFASALAZINE [Concomitant]
     Active Substance: SULFASALAZINE
     Dosage: 2 EVERY 1 DAYS
     Route: 048
  241. SULFASALAZINE [Concomitant]
     Active Substance: SULFASALAZINE
     Dosage: 1 EVERY 1 DAYS
     Route: 048
  242. SULFASALAZINE [Concomitant]
     Active Substance: SULFASALAZINE
     Dosage: 2 EVERY 1 DAYS
     Route: 048
  243. SULFASALAZINE [Concomitant]
     Active Substance: SULFASALAZINE
     Route: 048
  244. SIMPONI [Concomitant]
     Active Substance: GOLIMUMAB
     Indication: Rheumatoid arthritis
     Route: 042
  245. SIMPONI [Concomitant]
     Active Substance: GOLIMUMAB
     Route: 058
  246. SIMPONI [Concomitant]
     Active Substance: GOLIMUMAB
  247. SIMPONI [Concomitant]
     Active Substance: GOLIMUMAB
     Route: 058
  248. SIMPONI [Concomitant]
     Active Substance: GOLIMUMAB
     Dosage: SOLUTION FOR SUBCUTANOEUS
     Route: 058
  249. SIMPONI [Concomitant]
     Active Substance: GOLIMUMAB
     Route: 052
  250. SIMPONI [Concomitant]
     Active Substance: GOLIMUMAB
     Dosage: 2 EVERY 1 DAYS
     Route: 058
  251. STELARA [Concomitant]
     Active Substance: USTEKINUMAB
     Indication: Product used for unknown indication
     Route: 058
  252. STELARA [Concomitant]
     Active Substance: USTEKINUMAB
     Route: 042
  253. STELARA [Concomitant]
     Active Substance: USTEKINUMAB
     Dosage: SOLUTION FOR SUBCUTANOEUS
  254. STELARA [Concomitant]
     Active Substance: USTEKINUMAB
     Route: 058
  255. SULFAMETHOXAZOLE [Concomitant]
     Active Substance: SULFAMETHOXAZOLE
     Indication: Product used for unknown indication
  256. SULFASALAZINE [Concomitant]
     Active Substance: SULFASALAZINE
     Indication: Rheumatoid arthritis
  257. SULFASALAZINE [Concomitant]
     Active Substance: SULFASALAZINE
     Route: 048
  258. SULFASALAZINE [Concomitant]
     Active Substance: SULFASALAZINE
     Route: 048
  259. SULFASALAZINE [Concomitant]
     Active Substance: SULFASALAZINE
  260. SULFASALAZINE [Concomitant]
     Active Substance: SULFASALAZINE
     Route: 048
  261. SULFASALAZINE [Concomitant]
     Active Substance: SULFASALAZINE
     Route: 048
  262. SULFASALAZINE [Concomitant]
     Active Substance: SULFASALAZINE
     Route: 048
  263. SULFASALAZINE [Concomitant]
     Active Substance: SULFASALAZINE
  264. SULFASALAZINE [Concomitant]
     Active Substance: SULFASALAZINE
  265. SULFASALAZINE [Concomitant]
     Active Substance: SULFASALAZINE
     Route: 048
  266. SULFASALAZINE [Concomitant]
     Active Substance: SULFASALAZINE
     Route: 048
  267. SULFASALAZINE [Concomitant]
     Active Substance: SULFASALAZINE
     Route: 058
  268. SULFASALAZINE [Concomitant]
     Active Substance: SULFASALAZINE
     Route: 048
  269. SULFASALAZINE [Concomitant]
     Active Substance: SULFASALAZINE
     Route: 048
  270. SULFASALAZINE [Concomitant]
     Active Substance: SULFASALAZINE
     Route: 048
  271. SULFASALAZINE [Concomitant]
     Active Substance: SULFASALAZINE
     Route: 048
  272. SULFASALAZINE [Concomitant]
     Active Substance: SULFASALAZINE
     Route: 048
  273. SULFASALAZINE [Concomitant]
     Active Substance: SULFASALAZINE
  274. SULFASALAZINE [Concomitant]
     Active Substance: SULFASALAZINE
     Route: 058
  275. SULFASALAZINE [Concomitant]
     Active Substance: SULFASALAZINE
  276. TOCILIZUMAB [Concomitant]
     Active Substance: TOCILIZUMAB
     Indication: Rheumatoid arthritis
  277. TOCILIZUMAB [Concomitant]
     Active Substance: TOCILIZUMAB
     Route: 058
  278. TOFACITINIB CITRATE [Concomitant]
     Active Substance: TOFACITINIB CITRATE
     Indication: Rheumatoid arthritis
     Route: 048
  279. TOFACITINIB CITRATE [Concomitant]
     Active Substance: TOFACITINIB CITRATE
     Indication: Psoriatic arthropathy
  280. TOFACITINIB CITRATE [Concomitant]
     Active Substance: TOFACITINIB CITRATE
     Route: 048
  281. TOFACITINIB CITRATE [Concomitant]
     Active Substance: TOFACITINIB CITRATE
     Route: 058
  282. TOFACITINIB CITRATE [Concomitant]
     Active Substance: TOFACITINIB CITRATE
  283. TRAMADOL HYDROCHLORIDE [Concomitant]
     Active Substance: TRAMADOL HYDROCHLORIDE
     Indication: Product used for unknown indication
  284. TRIAMCINOLONE ACETONIDE [Concomitant]
     Active Substance: TRIAMCINOLONE ACETONIDE
     Indication: Rheumatoid arthritis
     Dosage: SUSPENSION INTRA ARTICULAR
  285. USTEKINUMAB [Concomitant]
     Active Substance: USTEKINUMAB
     Indication: Psoriatic arthropathy
     Route: 058
  286. USTEKINUMAB [Concomitant]
     Active Substance: USTEKINUMAB
     Route: 042
  287. VITAMIN C [Concomitant]
     Active Substance: ASCORBIC ACID
     Indication: Product used for unknown indication
  288. VITAMIN D3 [Concomitant]
     Active Substance: CHOLECALCIFEROL
     Indication: Product used for unknown indication
  289. SALTRIM [SULFAMETHOXAZOLE;TRIMETHOPRIM] [Concomitant]
     Indication: Product used for unknown indication
  290. PREDNISONE [Concomitant]
     Active Substance: PREDNISONE
     Indication: Rheumatoid arthritis
     Route: 048
  291. PREDNISONE [Concomitant]
     Active Substance: PREDNISONE
  292. XELJANZ [Concomitant]
     Active Substance: TOFACITINIB CITRATE
     Indication: Rheumatoid arthritis
     Route: 048
  293. XELJANZ [Concomitant]
     Active Substance: TOFACITINIB CITRATE
  294. XELJANZ [Concomitant]
     Active Substance: TOFACITINIB CITRATE
     Route: 048
  295. XELJANZ [Concomitant]
     Active Substance: TOFACITINIB CITRATE
  296. XELJANZ [Concomitant]
     Active Substance: TOFACITINIB CITRATE
  297. XELJANZ [Concomitant]
     Active Substance: TOFACITINIB CITRATE
     Route: 048

REACTIONS (60)
  - Dry mouth [Unknown]
  - Duodenal ulcer perforation [Unknown]
  - Facet joint syndrome [Unknown]
  - Fatigue [Unknown]
  - Fibromyalgia [Unknown]
  - Folliculitis [Unknown]
  - General physical health deterioration [Unknown]
  - Glossodynia [Unknown]
  - Hand deformity [Unknown]
  - Helicobacter infection [Unknown]
  - Hepatic enzyme increased [Unknown]
  - Hypersensitivity [Unknown]
  - Hypertension [Unknown]
  - Ill-defined disorder [Unknown]
  - Impaired healing [Unknown]
  - Infection [Unknown]
  - Inflammation [Unknown]
  - Infusion related reaction [Unknown]
  - Injury [Unknown]
  - Insomnia [Unknown]
  - Irritable bowel syndrome [Unknown]
  - Joint range of motion decreased [Unknown]
  - Joint swelling [Unknown]
  - Lip dry [Unknown]
  - Liver disorder [Unknown]
  - Malaise [Unknown]
  - Mobility decreased [Unknown]
  - Adverse event [Unknown]
  - Medication error [Unknown]
  - Wound [Unknown]
  - Wheezing [Unknown]
  - Weight increased [Unknown]
  - Vomiting [Unknown]
  - Urticaria [Unknown]
  - Type 2 diabetes mellitus [Unknown]
  - Systemic lupus erythematosus [Unknown]
  - Synovitis [Unknown]
  - Swollen joint count increased [Unknown]
  - Swelling [Unknown]
  - Stomatitis [Unknown]
  - Sinusitis [Unknown]
  - Sleep disorder [Unknown]
  - Sleep disorder due to general medical condition, insomnia type [Unknown]
  - Sciatica [Unknown]
  - Road traffic accident [Unknown]
  - Rheumatoid factor positive [Unknown]
  - Rheumatoid arthritis [Unknown]
  - Rheumatic fever [Unknown]
  - Rash [Unknown]
  - Pyrexia [Unknown]
  - Psoriatic arthropathy [Unknown]
  - Pruritus [Unknown]
  - C-reactive protein [Unknown]
  - Drug ineffective [Unknown]
  - Drug intolerance [Unknown]
  - Hypoaesthesia [Unknown]
  - Treatment failure [Unknown]
  - Therapy non-responder [Unknown]
  - Therapeutic product effect decreased [Unknown]
  - Hospitalisation [Unknown]
